FAERS Safety Report 6375948-1 (Version None)
Quarter: 2009Q3

REPORT INFORMATION
  Report Type: 
  Country: None (occurrence: None)
  Receive Date: 20090918
  Receipt Date: 20090903
  Transmission Date: 20100115
  Serious: Yes (Life-Threatening, Hospitalization)
  Sender: FDA-Public Use
  Company Number: 8048049

PATIENT
  Age: 32 Year
  Sex: Male
  Weight: 74 kg

DRUGS (8)
  1. KEPPRA [Suspect]
     Indication: EPILEPSY
     Dosage: 1000 MG IV
     Route: 042
     Dates: start: 20090616, end: 20090702
  2. VIMPAT [Suspect]
     Indication: EPILEPSY
     Dosage: 50 MG 2/D IV
     Route: 042
     Dates: start: 20090620, end: 20090622
  3. VALPROATE SODIUM [Suspect]
     Indication: EPILEPSY
     Dosage: 600 MG 4/D IV
     Route: 042
     Dates: start: 20090613, end: 20090618
  4. PANTOPRAZOL [Concomitant]
  5. HEPARIN [Concomitant]
  6. AMPICILLIN AND SULBACTAM [Concomitant]
  7. TOPAMAX [Concomitant]
  8. LORAZEPAM [Concomitant]

REACTIONS (5)
  - AFFECT LABILITY [None]
  - BRADYCARDIA [None]
  - CONVULSION [None]
  - GASTRIC DISORDER [None]
  - PSYCHOTIC DISORDER [None]
